FAERS Safety Report 8054906-5 (Version None)
Quarter: 2012Q1

REPORT INFORMATION
  Report Type: 
  Country: None (occurrence: None)
  Receive Date: 20120119
  Receipt Date: 20120113
  Transmission Date: 20120608
  Serious: Yes (Other)
  Sender: FDA-Public Use
  Company Number: US-SANOFI-AVENTIS-2012SA003307

PATIENT
  Age: 53 Year
  Sex: Male

DRUGS (3)
  1. OPTICLICK [Suspect]
     Indication: TYPE 2 DIABETES MELLITUS
  2. LANTUS [Suspect]
     Indication: TYPE 2 DIABETES MELLITUS
     Dosage: DOSE:40 UNIT(S)
     Route: 058
  3. AMIODARONE HCL [Concomitant]

REACTIONS (1)
  - THYROIDECTOMY [None]
